FAERS Safety Report 4427106-5 (Version None)
Quarter: 2004Q3

REPORT INFORMATION
  Report Type: 
  Country: None (occurrence: None)
  Receive Date: 20040811
  Receipt Date: 20040728
  Transmission Date: 20050211
  Serious: Yes (Hospitalization)
  Sender: FDA-Public Use
  Company Number: 0400032EN0020P

PATIENT
  Age: 12 Year
  Sex: Male

DRUGS (1)
  1. ONCASPAR [Suspect]
     Indication: ACUTE LYMPHOCYTIC LEUKAEMIA

REACTIONS (8)
  - ABDOMINAL PAIN [None]
  - BLOOD PRESSURE DECREASED [None]
  - DRUG HYPERSENSITIVITY [None]
  - OXYGEN SATURATION DECREASED [None]
  - PRURITUS [None]
  - RASH ERYTHEMATOUS [None]
  - VISUAL DISTURBANCE [None]
  - VOMITING [None]
